FAERS Safety Report 23325844 (Version 1)
Quarter: 2023Q4

REPORT INFORMATION
  Report Type: Spontaneous
  Country: US (occurrence: US)
  Receive Date: 20231221
  Receipt Date: 20231221
  Transmission Date: 20240110
  Serious: Yes (Death, Other)
  Sender: FDA-Public Use
  Company Number: US-PFIZER INC-PV202200058768

PATIENT
  Age: 63 Year
  Sex: Male

DRUGS (1)
  1. NIVESTYM [Suspect]
     Active Substance: FILGRASTIM-AAFI
     Dosage: 480 UG, 1X/DAY (FOR 7 DAYS STARTING 24 HOURS AFTER CHEMOTHERAPY)
     Route: 058

REACTIONS (1)
  - Death [Fatal]
